FAERS Safety Report 22389123 (Version 1)
Quarter: 2023Q2

REPORT INFORMATION
  Report Type: Spontaneous
  Country: CN (occurrence: CN)
  Receive Date: 20230531
  Receipt Date: 20230531
  Transmission Date: 20230722
  Serious: Yes (Other)
  Sender: FDA-Public Use
  Company Number: CN-PFIZER INC-PV202300094203

PATIENT
  Age: 46 Year
  Sex: Male

DRUGS (7)
  1. VORICONAZOLE [Suspect]
     Active Substance: VORICONAZOLE
     Indication: Infection
     Dosage: 200 MG, DAILY (0.5 DAYS)
     Route: 042
     Dates: start: 20220211, end: 20220225
  2. ACETYLCYSTEINE [Concomitant]
     Active Substance: ACETYLCYSTEINE
     Indication: Lung disorder
     Dosage: UNK
  3. ADEMETIONINE [Concomitant]
     Active Substance: ADEMETIONINE
     Indication: Liver disorder
     Dosage: UNK
  4. AMMONIUM GLYCYRRHIZATE\CYSTEINE HYDROCHLORIDE\GLYCINE [Concomitant]
     Active Substance: AMMONIUM GLYCYRRHIZATE\CYSTEINE HYDROCHLORIDE\GLYCINE
     Indication: Lung disorder
     Dosage: UNK
  5. MOXIFLOXACIN [Concomitant]
     Active Substance: MOXIFLOXACIN
     Indication: Infection
     Dosage: UNK
  6. PIPERACILLIN [Concomitant]
     Active Substance: PIPERACILLIN
     Indication: Infection
     Dosage: UNK
  7. AMBROXOL [Concomitant]
     Active Substance: AMBROXOL
     Indication: Productive cough
     Dosage: UNK

REACTIONS (1)
  - Myopathy [Recovered/Resolved]

NARRATIVE: CASE EVENT DATE: 20220223
